FAERS Safety Report 20223964 (Version 1)
Quarter: 2021Q4

REPORT INFORMATION
  Report Type: Spontaneous
  Country: NL (occurrence: NL)
  Receive Date: 20211223
  Receipt Date: 20211223
  Transmission Date: 20220303
  Serious: Yes (Other)
  Sender: FDA-Public Use
  Company Number: NL-TEVA-2021-NL-1989598

PATIENT
  Age: 67 Year
  Sex: Female

DRUGS (3)
  1. DOXORUBICIN [Suspect]
     Active Substance: DOXORUBICIN
     Indication: Breast cancer
     Dosage: RECEIVED FOUR CYCLES; CUMULATIVE DOSE 240MG/M 2
     Route: 065
  2. CYCLOPHOSPHAMIDE [Concomitant]
     Active Substance: CYCLOPHOSPHAMIDE
     Indication: Breast cancer
     Dosage: RECEIVED FOUR CYCLES
     Route: 065
  3. TAMOXIFEN [Concomitant]
     Active Substance: TAMOXIFEN
     Indication: Breast cancer
     Dosage: 20 MILLIGRAM DAILY;
     Route: 065

REACTIONS (1)
  - Congestive cardiomyopathy [Recovering/Resolving]

NARRATIVE: CASE EVENT DATE: 20110101
